FAERS Safety Report 20062641 (Version 2)
Quarter: 2021Q4

REPORT INFORMATION
  Report Type: Report from Study
  Country: US (occurrence: US)
  Receive Date: 20211112
  Receipt Date: 20211124
  Transmission Date: 20220303
  Serious: Yes (Hospitalization)
  Sender: FDA-Public Use
  Company Number: US-PFIZER INC-202101500629

PATIENT
  Age: 59 Year
  Sex: Male
  Weight: 82.54 kg

DRUGS (1)
  1. TORISEL [Suspect]
     Active Substance: TEMSIROLIMUS
     Dosage: 25 MG (25.0 MG/DOSE)
     Route: 042

REACTIONS (1)
  - Oedema genital [Recovered/Resolved]
